FAERS Safety Report 20307621 (Version 1)
Quarter: 2022Q1

REPORT INFORMATION
  Report Type: Spontaneous
  Country: US (occurrence: US)
  Receive Date: 20220107
  Receipt Date: 20220107
  Transmission Date: 20220423
  Serious: No
  Sender: FDA-Public Use
  Company Number: US-LUNDBECK-DKLU3041922

PATIENT
  Age: 30 Year
  Sex: Female

DRUGS (1)
  1. VYEPTI [Suspect]
     Active Substance: EPTINEZUMAB-JJMR
     Indication: Product used for unknown indication
     Route: 041

REACTIONS (5)
  - Infusion site discolouration [Unknown]
  - Pyrexia [Unknown]
  - Nasal pruritus [Unknown]
  - Nasal congestion [Unknown]
  - Therapeutic product effect decreased [Unknown]
